FAERS Safety Report 7961405-5 (Version None)
Quarter: 2011Q4

REPORT INFORMATION
  Report Type: 
  Country: None (occurrence: None)
  Receive Date: 20111121
  Receipt Date: 20111003
  Transmission Date: 20120403
  Serious: No
  Sender: FDA-Public Use
  Company Number: 1000024397

PATIENT
  Age: 69 Year
  Sex: Female
  Weight: 53.5 kg

DRUGS (5)
  1. HIGH BLOOD PRESSURE MEDICATION NOS (HIGH BLOOD PRESSURE MEDICAION NOS) [Concomitant]
  2. DIURETIC NOS (DIURETIC NOS) (DIURETIC NOS) [Concomitant]
  3. STATIN NOS (STATIN NOS) [Concomitant]
  4. VIIBRYD [Suspect]
     Indication: ANXIETY
     Dosage: 10 MG (10 MG, 1 IN 1 D), ORAL
     Route: 048
     Dates: start: 20110801
  5. VIIBRYD [Suspect]
     Indication: DEPRESSION
     Dosage: 10 MG (10 MG, 1 IN 1 D), ORAL
     Route: 048
     Dates: start: 20110801

REACTIONS (1)
  - WEIGHT LOSS POOR [None]
